FAERS Safety Report 8030897-8 (Version None)
Quarter: 2012Q1

REPORT INFORMATION
  Report Type: 
  Country: None (occurrence: None)
  Receive Date: 20120109
  Receipt Date: 20111228
  Transmission Date: 20120608
  Serious: Yes (Death)
  Sender: FDA-Public Use
  Company Number: FR-UCBSA-026684

PATIENT
  Age: 21 Year
  Sex: Female
  Weight: 75 kg

DRUGS (7)
  1. IMPLANON [Concomitant]
     Indication: CONTRACEPTION
     Route: 058
     Dates: start: 20100614, end: 20110115
  2. VIMPAT [Suspect]
     Indication: EPILEPSY
     Route: 048
     Dates: start: 20091115, end: 20110115
  3. DEPAKENE [Concomitant]
     Indication: EPILEPSY
     Dosage: 500MG IN THE MORNING AND 750MG AT NIGHT
     Route: 048
     Dates: start: 19930101, end: 20110115
  4. CLONAZEPAM [Concomitant]
     Indication: EPILEPSY
     Dosage: AT NIGHT
     Route: 048
     Dates: end: 20110115
  5. TERCIAN [Concomitant]
     Indication: AGGRESSION
     Dosage: 12.5 MG + 12.5 MG + 25 MG
     Route: 048
     Dates: start: 20080626, end: 20110115
  6. PHENOBARBITAL TAB [Concomitant]
     Indication: EPILEPSY
     Dosage: AT NIGHT
     Route: 048
     Dates: start: 20070101, end: 20110115
  7. ORAL CONTRACEPTIVE [Concomitant]

REACTIONS (1)
  - SUDDEN UNEXPLAINED DEATH IN EPILEPSY [None]
